FAERS Safety Report 10016067 (Version 1)
Quarter: 2014Q1

REPORT INFORMATION
  Report Type: Spontaneous
  Country: US (occurrence: US)
  Receive Date: 20140317
  Receipt Date: 20140317
  Transmission Date: 20141002
  Serious: No
  Sender: FDA-Public Use
  Company Number: US-MYLANLABS-2013S1003282

PATIENT
  Age: 69 Year
  Sex: Female
  Weight: 74.84 kg

DRUGS (4)
  1. CHLORTHALIDONE TABLETS, USP [Suspect]
     Indication: BLOOD PRESSURE INCREASED
     Route: 048
     Dates: start: 201301
  2. NORVASC [Concomitant]
  3. TENORMIN [Concomitant]
  4. PRAVASTATIN [Concomitant]

REACTIONS (2)
  - Loss of bladder sensation [Not Recovered/Not Resolved]
  - Palpitations [Not Recovered/Not Resolved]
